FAERS Safety Report 6695523-9 (Version None)
Quarter: 2010Q2

REPORT INFORMATION
  Report Type: 
  Country: None (occurrence: None)
  Receive Date: 20100426
  Receipt Date: 20100415
  Transmission Date: 20101027
  Serious: Yes (Hospitalization)
  Sender: FDA-Public Use
  Company Number: US-BIOGENIDEC-2010BI012862

PATIENT
  Sex: Female

DRUGS (2)
  1. AVONEX [Suspect]
     Indication: MULTIPLE SCLEROSIS
     Route: 030
     Dates: start: 20080317, end: 20081201
  2. AVONEX [Suspect]
     Route: 030
     Dates: start: 20090514

REACTIONS (6)
  - BLOOD PRESSURE INCREASED [None]
  - CARTILAGE INJURY [None]
  - DYSSTASIA [None]
  - FALL [None]
  - PAIN [None]
  - SYNOVIAL CYST [None]
